FAERS Safety Report 4935120-6 (Version None)
Quarter: 2006Q1

REPORT INFORMATION
  Report Type: 
  Country: None (occurrence: None)
  Receive Date: 20060302
  Receipt Date: 20060217
  Transmission Date: 20060701
  Serious: Yes (Other)
  Sender: FDA-Public Use
  Company Number: 2006025601

PATIENT
  Age: 72 Year
  Sex: Female
  Weight: 52.1637 kg

DRUGS (21)
  1. DETROL LA [Suspect]
     Indication: HYPERTONIC BLADDER
     Dosage: 4 MG (4 MG, 1 IN 1 D), ORAL
     Route: 048
  2. DETROL LA [Suspect]
     Indication: MICTURITION URGENCY
     Dosage: 4 MG (4 MG, 1 IN 1 D), ORAL
     Route: 048
  3. DETROL LA [Suspect]
     Indication: POLLAKIURIA
     Dosage: 4 MG (4 MG, 1 IN 1 D), ORAL
     Route: 048
  4. GLUCOSAMINE (GLUCOSAMINE) [Suspect]
     Indication: ARTHROPATHY
  5. WARFARIN SODIUM [Suspect]
     Indication: ILL-DEFINED DISORDER
  6. ALREX (LOTEPREDNOL ETABONATE) [Concomitant]
  7. FUROSEMIDE [Concomitant]
  8. ALLEGRA [Concomitant]
  9. XANAX [Concomitant]
  10. DILTIAZEM [Concomitant]
  11. PRAVACHOL [Concomitant]
  12. PREVACID [Concomitant]
  13. POTASSIUM (POTASSIUM) [Concomitant]
  14. LEVBID (HYOSCYAMINE SULFATE) [Concomitant]
  15. METOPROLOL (METOPROLOL) [Concomitant]
  16. VALSARTAN [Concomitant]
  17. ZOLOFT [Concomitant]
  18. TRIAMCINOLONE [Concomitant]
  19. TERAZOSIN (TERAZOSIN) [Concomitant]
  20. VALIUM [Concomitant]
  21. NITROGLYCERIN TRANSDERMAL SYSTEM (GLYCERYL TRINITRATE) [Concomitant]

REACTIONS (10)
  - ABDOMINAL PAIN UPPER [None]
  - ANXIETY [None]
  - BARIUM SWALLOW ABNORMAL [None]
  - BLOOD PRESSURE DECREASED [None]
  - BLOOD TEST ABNORMAL [None]
  - CHOKING SENSATION [None]
  - CONDITION AGGRAVATED [None]
  - DYSPHAGIA [None]
  - FEELING ABNORMAL [None]
  - IMPAIRED DRIVING ABILITY [None]
